FAERS Safety Report 25802378 (Version 1)
Quarter: 2025Q3

REPORT INFORMATION
  Report Type: Spontaneous
  Country: US (occurrence: None)
  Receive Date: 20250912
  Receipt Date: 20250912
  Transmission Date: 20251020
  Serious: No
  Sender: FDA-CTU
  Company Number: None

PATIENT
  Age: 72 Year
  Sex: Female
  Weight: 77.7 kg

DRUGS (14)
  1. LAMOTRIGINE [Suspect]
     Active Substance: LAMOTRIGINE
     Indication: Seizure
     Dates: start: 20250716, end: 20250909
  2. LEVETIRACETAM [Suspect]
     Active Substance: LEVETIRACETAM
  3. ACETAMINOPHEN [Suspect]
     Active Substance: ACETAMINOPHEN
  4. AMLODIPINE [Suspect]
     Active Substance: AMLODIPINE BESYLATE
  5. APIXABAN [Suspect]
     Active Substance: APIXABAN
  6. ATORVASTATIN [Suspect]
     Active Substance: ATORVASTATIN
  7. CARVEDILOL [Suspect]
     Active Substance: CARVEDILOL
  8. INSULIN GLARGINE [Suspect]
     Active Substance: INSULIN GLARGINE
  9. INSULIN LISPRO [Suspect]
     Active Substance: INSULIN LISPRO
  10. LOSARTAN [Suspect]
     Active Substance: LOSARTAN
  11. METFORMIN [Suspect]
     Active Substance: METFORMIN HYDROCHLORIDE
  12. PREDNISONE [Suspect]
     Active Substance: PREDNISONE
  13. SERTRALINE [Suspect]
     Active Substance: SERTRALINE HYDROCHLORIDE
  14. SPIRONOLACTONE [Suspect]
     Active Substance: SPIRONOLACTONE

REACTIONS (3)
  - Aspartate aminotransferase increased [None]
  - Alanine aminotransferase increased [None]
  - Therapy change [None]

NARRATIVE: CASE EVENT DATE: 20250829
